FAERS Safety Report 8954045 (Version 2)
Quarter: 2015Q1

REPORT INFORMATION
  Report Type: Report from Study
  Country: US (occurrence: US)
  Receive Date: 20121207
  Receipt Date: 20150318
  Transmission Date: 20150721
  Serious: Yes (Hospitalization, Other)
  Sender: FDA-Public Use
  Company Number: US-BRISTOL-MYERS SQUIBB COMPANY-17162173

PATIENT
  Age: 55 Year
  Sex: Female
  Weight: 79 kg

DRUGS (1)
  1. IPILIMUMAB [Suspect]
     Active Substance: IPILIMUMAB
     Indication: MALIGNANT MELANOMA
     Dosage: LAST ADMIN:16JUL12. IND: 3MG/KG OVER 90MINS, Q3WKS X 4WKS. MAIN: Q12WKS ON WKS 24,36,48,60;265MGTOTL
     Route: 042
     Dates: start: 20120625

REACTIONS (2)
  - Nausea [Recovered/Resolved]
  - Vomiting [Recovered/Resolved]

NARRATIVE: CASE EVENT DATE: 20120803
